FAERS Safety Report 9570995 (Version 1)
Quarter: 2013Q4

REPORT INFORMATION
  Report Type: Spontaneous
  Country: FR (occurrence: FR)
  Receive Date: 20131001
  Receipt Date: 20131001
  Transmission Date: 20140711
  Serious: Yes (Hospitalization)
  Sender: FDA-Public Use
  Company Number: FR-JNJFOC-20130912956

PATIENT
  Age: 79 Year
  Sex: Male

DRUGS (5)
  1. EPITOMAX [Suspect]
     Indication: GRAND MAL CONVULSION
     Route: 048
     Dates: start: 20130513, end: 20130522
  2. LASILIX [Suspect]
     Indication: OEDEMA PERIPHERAL
     Route: 048
     Dates: start: 201305, end: 20130522
  3. ZYMA-D2 [Concomitant]
     Route: 048
     Dates: end: 20130522
  4. DEPAKINE CHRONO [Concomitant]
     Dosage: 500MG-0-1000MG
     Route: 048
     Dates: start: 201302
  5. URBANYL [Concomitant]
     Route: 048

REACTIONS (9)
  - Fall [Unknown]
  - Loss of consciousness [Unknown]
  - Tremor [Recovered/Resolved]
  - Hyperthermia [Recovered/Resolved]
  - Speech disorder [Unknown]
  - Malaise [Unknown]
  - Slow response to stimuli [Unknown]
  - Oedema peripheral [Unknown]
  - Wound infection [Unknown]
